FAERS Safety Report 5927332-X (Version None)
Quarter: 2008Q4

REPORT INFORMATION
  Report Type: 
  Country: None (occurrence: None)
  Receive Date: 20081020
  Receipt Date: 20081006
  Transmission Date: 20090506
  Serious: Yes (Other)
  Sender: FDA-Public Use
  Company Number: PAR_02359_2008

PATIENT
  Age: 10 Year
  Sex: Female

DRUGS (14)
  1. IBUPROFEN TABLETS [Suspect]
     Indication: JUVENILE ARTHRITIS
     Dosage: DF
  2. NAPROXEN [Suspect]
     Indication: JUVENILE ARTHRITIS
     Dosage: ^LOW-DOSE DAILY^
  3. RITUXIMAB [Suspect]
     Indication: JUVENILE ARTHRITIS
     Dosage: 1 DF 2X
  4. CORTICOSTEROIDS [Suspect]
     Indication: JUVENILE ARTHRITIS
     Dosage: DF
  5. METHOTREXATE [Suspect]
     Indication: JUVENILE ARTHRITIS
     Dosage: 0.8 MG/KG
  6. ETANERCEPT [Suspect]
     Indication: JUVENILE ARTHRITIS
     Dosage: DF
  7. INFLIXIMAB [Suspect]
     Indication: JUVENILE ARTHRITIS
     Dosage: 3 MG/KG
  8. LEFLUNOMIDE [Suspect]
     Indication: JUVENILE ARTHRITIS
     Dosage: DF
  9. KINERET [Suspect]
     Indication: JUVENILE ARTHRITIS
     Dosage: DF
  10. CYCLOPHOSPHAMIDE [Suspect]
     Indication: JUVENILE ARTHRITIS
     Dosage: 1 DF 1X/MONTH INTRAVENOUS (NOT OTHERWISE SPECIFIED)
     Route: 042
  11. THALIDOMIDE [Suspect]
     Indication: JUVENILE ARTHRITIS
     Dosage: DF
  12. PREDNISONE TAB [Suspect]
     Indication: JUVENILE ARTHRITIS
     Dosage: ^LOW-DOSE DAILY^
  13. ADALIMUMAB [Suspect]
     Indication: JUVENILE ARTHRITIS
     Dosage: 1 MG/KG 1X /WEEK
  14. METHADONE HCL [Suspect]
     Indication: JUVENILE ARTHRITIS
     Dosage: LOW-DOSE DAILY^

REACTIONS (4)
  - ANAPHYLACTIC REACTION [None]
  - DRUG EFFECT DECREASED [None]
  - HODGKIN'S DISEASE [None]
  - WHEELCHAIR USER [None]
